FAERS Safety Report 22176641 (Version 1)
Quarter: 2023Q2

REPORT INFORMATION
  Report Type: Spontaneous
  Country: US (occurrence: US)
  Receive Date: 20230405
  Receipt Date: 20230405
  Transmission Date: 20230722
  Serious: No
  Sender: FDA-Public Use
  Company Number: US-SA-SAC20230403000143

PATIENT
  Sex: Female
  Weight: 69.03 kg

DRUGS (1)
  1. DUPIXENT [Suspect]
     Active Substance: DUPILUMAB
     Indication: Dermatitis atopic
     Dosage: 300 MG, QOW
     Route: 058
     Dates: start: 20220924

REACTIONS (4)
  - Dry skin [Unknown]
  - Skin fissures [Unknown]
  - Pruritus [Unknown]
  - Skin exfoliation [Unknown]
